FAERS Safety Report 20350810 (Version 1)
Quarter: 2022Q1

REPORT INFORMATION
  Report Type: Spontaneous
  Country: CN (occurrence: None)
  Receive Date: 20220119
  Receipt Date: 20220119
  Transmission Date: 20220423
  Serious: Yes (Other)
  Sender: FDA-Public Use
  Company Number: 2022A023254

PATIENT
  Age: 22890 Day
  Sex: Female
  Weight: 63 kg

DRUGS (3)
  1. ROSUVASTATIN CALCIUM [Suspect]
     Active Substance: ROSUVASTATIN CALCIUM
     Indication: Hyperlipidaemia
     Route: 048
     Dates: start: 20211201, end: 20211213
  2. IOVERSOL [Suspect]
     Active Substance: IOVERSOL
     Indication: Labour augmentation
     Route: 042
     Dates: start: 20211202, end: 20211202
  3. IOVERSOL [Suspect]
     Active Substance: IOVERSOL
     Indication: Labour augmentation
     Route: 042
     Dates: start: 20211207, end: 20211207

REACTIONS (4)
  - Swelling [Unknown]
  - Drug hypersensitivity [Unknown]
  - Rash [Unknown]
  - Pruritus [Unknown]

NARRATIVE: CASE EVENT DATE: 20211211
